FAERS Safety Report 5650447-0 (Version None)
Quarter: 2008Q1

REPORT INFORMATION
  Report Type: 
  Country: None (occurrence: None)
  Receive Date: 20080303
  Receipt Date: 20080227
  Transmission Date: 20080703
  Serious: Yes (Hospitalization)
  Sender: FDA-Public Use
  Company Number: 2008SP003605

PATIENT
  Age: 66 Year
  Sex: Male
  Weight: 60.3 kg

DRUGS (6)
  1. RIBAVIRIN [Suspect]
     Indication: HEPATITIS C
     Dosage: 400 MG; BID; PO
     Route: 048
     Dates: start: 20080122, end: 20080212
  2. INTERFERON BETA (INTERFERON BETA) [Suspect]
     Indication: HEPATITIS C
     Dosage: ; IV
     Route: 042
     Dates: start: 20080122, end: 20080212
  3. CALONAL [Concomitant]
  4. RHYTHMY [Concomitant]
  5. URSO 250 [Concomitant]
  6. GASRICK D [Concomitant]

REACTIONS (8)
  - CHILLS [None]
  - GASTROENTERITIS [None]
  - HAEMORRHOIDAL HAEMORRHAGE [None]
  - INSOMNIA [None]
  - NASOPHARYNGITIS [None]
  - NAUSEA [None]
  - PROTEIN URINE PRESENT [None]
  - URINE BILIRUBIN INCREASED [None]
